FAERS Safety Report 11823894 (Version 1)
Quarter: 2015Q4

REPORT INFORMATION
  Report Type: Spontaneous
  Country: RU (occurrence: RU)
  Receive Date: 20151210
  Receipt Date: 20151210
  Transmission Date: 20160305
  Serious: Yes (Other)
  Sender: FDA-Public Use
  Company Number: RU-JNJFOC-20151207186

PATIENT
  Age: 64 Year
  Sex: Female
  Weight: 67 kg

DRUGS (7)
  1. CEFAZOLIN [Suspect]
     Active Substance: CEFAZOLIN
     Indication: INFECTION PROPHYLAXIS
     Dosage: DAILY DOSE 4 G/24 HR
     Route: 030
     Dates: start: 20151106, end: 20151109
  2. GELOFUSIN [Concomitant]
     Active Substance: GELATIN\POTASSIUM CHLORIDE\SODIUM CHLORIDE
     Indication: ANAESTHESIA
     Route: 042
     Dates: start: 20151106, end: 20151106
  3. XARELTO [Suspect]
     Active Substance: RIVAROXABAN
     Indication: THROMBOSIS PROPHYLAXIS
     Route: 048
     Dates: start: 20151107, end: 20151109
  4. QUAMATEL [Suspect]
     Active Substance: FAMOTIDINE
     Indication: GASTROINTESTINAL DISORDER
     Route: 042
     Dates: start: 20151106, end: 20151109
  5. TAVEGYL [Concomitant]
     Active Substance: CLEMASTINE FUMARATE
     Indication: ANAESTHESIA
     Route: 030
     Dates: start: 20151106, end: 20151106
  6. TRAMADOL. [Concomitant]
     Active Substance: TRAMADOL
     Indication: PAIN
     Route: 030
     Dates: start: 20151106, end: 20151109
  7. PROPOFOL. [Concomitant]
     Active Substance: PROPOFOL
     Indication: ANAESTHESIA
     Route: 042
     Dates: start: 20151106, end: 20151106

REACTIONS (5)
  - Alanine aminotransferase increased [Recovered/Resolved]
  - Drug-induced liver injury [Recovered/Resolved]
  - Laboratory test abnormal [Recovered/Resolved]
  - Aspartate aminotransferase increased [Recovered/Resolved]
  - Blood bilirubin increased [Recovered/Resolved]

NARRATIVE: CASE EVENT DATE: 20151109
